FAERS Safety Report 19370181 (Version 2)
Quarter: 2022Q1

REPORT INFORMATION
  Report Type: Spontaneous
  Country: US (occurrence: None)
  Receive Date: 20210603
  Receipt Date: 20220328
  Transmission Date: 20220423
  Serious: Yes (Other)
  Sender: FDA-Public Use
  Company Number: 2021A481328

PATIENT
  Sex: Female

DRUGS (5)
  1. PRILOSEC [Suspect]
     Active Substance: OMEPRAZOLE MAGNESIUM
     Indication: Gastrooesophageal reflux disease
     Route: 048
     Dates: start: 201501, end: 201905
  2. PRILOSEC [Suspect]
     Active Substance: OMEPRAZOLE MAGNESIUM
     Indication: Gastrooesophageal reflux disease
     Dosage: 20.0MG UNKNOWN
     Route: 048
     Dates: start: 2015, end: 2019
  3. LIDOCAINE [Concomitant]
     Active Substance: LIDOCAINE
  4. PREDNISONE [Concomitant]
     Active Substance: PREDNISONE
  5. CICLESONIDE/TIOTROPIUM [Concomitant]

REACTIONS (1)
  - Chronic kidney disease [Not Recovered/Not Resolved]
